FAERS Safety Report 24464059 (Version 1)
Quarter: 2024Q4

REPORT INFORMATION
  Report Type: Report from Study
  Country: US (occurrence: US)
  Receive Date: 20241018
  Receipt Date: 20241018
  Transmission Date: 20250114
  Serious: No
  Sender: ROCHE
  Company Number: US-ROCHE-3492946

PATIENT
  Age: 69 Year
  Sex: Female
  Weight: 67.13 kg

DRUGS (6)
  1. XOLAIR [Suspect]
     Active Substance: OMALIZUMAB
     Indication: Chronic spontaneous urticaria
     Route: 058
     Dates: end: 202012
  2. XOLAIR [Suspect]
     Active Substance: OMALIZUMAB
  3. BIOTIN [Concomitant]
     Active Substance: BIOTIN
  4. ESTRING [Concomitant]
     Active Substance: ESTRADIOL
  5. LOSARTAN [Concomitant]
     Active Substance: LOSARTAN
  6. SYNTHROID [Concomitant]
     Active Substance: LEVOTHYROXINE SODIUM

REACTIONS (5)
  - Headache [Unknown]
  - Snoring [Unknown]
  - Rhinorrhoea [Unknown]
  - Mouth breathing [Unknown]
  - Nasal congestion [Unknown]
